FAERS Safety Report 26060871 (Version 1)
Quarter: 2025Q4

REPORT INFORMATION
  Report Type: Spontaneous
  Country: US (occurrence: None)
  Receive Date: 20251118
  Receipt Date: 20251118
  Transmission Date: 20260117
  Serious: Yes (Other)
  Sender: FDA-CTU
  Company Number: None

PATIENT
  Age: 42 Year
  Sex: Female
  Weight: 101.25 kg

DRUGS (5)
  1. TOPIRAMATE [Suspect]
     Active Substance: TOPIRAMATE
     Indication: Encephalopathy
     Dosage: OTHER QUANTITY : 1 TABLET(S);?FREQUENCY : EVERY 12 HOURS;?
     Route: 048
     Dates: start: 20251028, end: 20251029
  2. CABERGOLINE [Concomitant]
     Active Substance: CABERGOLINE
  3. VIMPAT [Concomitant]
     Active Substance: LACOSAMIDE
  4. CARDIZEM [Concomitant]
     Active Substance: DILTIAZEM HYDROCHLORIDE
  5. LAMICTAL [Concomitant]
     Active Substance: LAMOTRIGINE

REACTIONS (11)
  - Therapy change [None]
  - Hypoaesthesia [None]
  - Hypoaesthesia [None]
  - Tongue biting [None]
  - Hypoaesthesia [None]
  - Paraesthesia [None]
  - Paraesthesia [None]
  - Seizure [None]
  - Condition aggravated [None]
  - Contraindicated product prescribed [None]
  - Contraindicated product administered [None]

NARRATIVE: CASE EVENT DATE: 20251029
